FAERS Safety Report 7470734-3 (Version None)
Quarter: 2011Q2

REPORT INFORMATION
  Report Type: 
  Country: None (occurrence: None)
  Receive Date: 20110510
  Receipt Date: 20110504
  Transmission Date: 20111010
  Serious: Yes (Death, Hospitalization, Other)
  Sender: FDA-Public Use
  Company Number: PHHO2011US07886

PATIENT
  Sex: Male
  Weight: 91.4 kg

DRUGS (2)
  1. AFINITOR [Suspect]
     Indication: GLIOBLASTOMA
     Dosage: UNK
     Route: 048
     Dates: start: 20100709, end: 20100806
  2. TEMOZOLOMIDE [Suspect]
     Indication: GLIOBLASTOMA
     Dosage: 75 MG/M2, UNK
     Route: 048
     Dates: start: 20100709, end: 20100811

REACTIONS (4)
  - DEATH [None]
  - POST PROCEDURAL HAEMORRHAGE [None]
  - PULMONARY EMBOLISM [None]
  - DYSPHAGIA [None]
